FAERS Safety Report 8179742-0 (Version None)
Quarter: 2012Q1

REPORT INFORMATION
  Report Type: 
  Country: None (occurrence: None)
  Receive Date: 20120229
  Receipt Date: 20120224
  Transmission Date: 20120608
  Serious: Yes (Life-Threatening, Hospitalization)
  Sender: FDA-Public Use
  Company Number: 2012TP000017

PATIENT
  Age: 61 Year
  Sex: Male

DRUGS (22)
  1. VICODIN [Concomitant]
  2. FLEXERIL [Concomitant]
  3. TIOTROPIUM [Concomitant]
  4. LOSARTAN POTASSIUM [Concomitant]
  5. ATENOLOL [Concomitant]
  6. SYMBICORT [Concomitant]
  7. VALIUM [Concomitant]
  8. GLUCOPHAGE [Concomitant]
  9. FLOVENT [Concomitant]
  10. NEBULIZER [Concomitant]
  11. VENICOL /00011701/ [Concomitant]
  12. PREVENTIL [Concomitant]
  13. LIDODERM [Suspect]
     Indication: BACK PAIN
     Dosage: 1 PATCH;PRN;TOP
     Route: 061
  14. PREDNISONE /00058401/ [Concomitant]
  15. COLCHICIN [Concomitant]
  16. STENT [Concomitant]
  17. NITROGLYCERIN [Concomitant]
  18. VENTOLIN [Concomitant]
  19. ASPIRIN [Concomitant]
  20. PREVEX /00473501/ [Concomitant]
  21. METOPROLOL SUCCINATE [Concomitant]
  22. IBUPROFEN [Concomitant]

REACTIONS (1)
  - CARDIO-RESPIRATORY ARREST [None]
